FAERS Safety Report 12658567 (Version 1)
Quarter: 2016Q3

REPORT INFORMATION
  Report Type: Spontaneous
  Country: US (occurrence: US)
  Receive Date: 20160817
  Receipt Date: 20160817
  Transmission Date: 20161109
  Serious: Yes (Other)
  Sender: FDA-Public Use
  Company Number: US-ASTRAZENECA-2016SE86977

PATIENT
  Sex: Female

DRUGS (1)
  1. ARIMIDEX [Suspect]
     Active Substance: ANASTROZOLE
     Indication: BREAST CANCER RECURRENT
     Route: 048

REACTIONS (6)
  - Lung cancer metastatic [Unknown]
  - Pleural effusion [Unknown]
  - Spinal cord injury [Unknown]
  - Incision site rash [Unknown]
  - Therapeutic response unexpected [Recovered/Resolved]
  - Malignant neoplasm progression [Unknown]
